FAERS Safety Report 6039779-4 (Version None)
Quarter: 2009Q1

REPORT INFORMATION
  Report Type: 
  Country: None (occurrence: None)
  Receive Date: 20090116
  Receipt Date: 20090108
  Transmission Date: 20090719
  Serious: Yes (Death)
  Sender: FDA-Public Use
  Company Number: US-AMGEN-US323085

PATIENT
  Sex: Male

DRUGS (4)
  1. NEUPOGEN [Suspect]
     Indication: CHEMOTHERAPY
     Route: 065
     Dates: end: 20080206
  2. NEULASTA [Suspect]
     Indication: CHEMOTHERAPY
     Route: 065
     Dates: end: 20080206
  3. DOCETAXEL [Concomitant]
     Route: 065
     Dates: start: 20080107, end: 20080206
  4. FLUOROURACIL [Concomitant]
     Route: 065
     Dates: start: 20080104, end: 20080206

REACTIONS (1)
  - MALIGNANT NEOPLASM PROGRESSION [None]
